FAERS Safety Report 21401481 (Version 4)
Quarter: 2023Q1

REPORT INFORMATION
  Report Type: Report from Study
  Country: CA (occurrence: CA)
  Receive Date: 20221003
  Receipt Date: 20230228
  Transmission Date: 20230418
  Serious: Yes (Hospitalization, Other)
  Sender: FDA-Public Use
  Company Number: CA-AMGEN-CANSL2022167237

PATIENT
  Age: 80 Year
  Sex: Female

DRUGS (2)
  1. AVSOLA [Suspect]
     Active Substance: INFLIXIMAB-AXXQ
     Indication: Rheumatoid arthritis
     Dosage: 500 MILLIGRAM, Q6WK
     Route: 065
     Dates: start: 20220412
  2. AVSOLA [Suspect]
     Active Substance: INFLIXIMAB-AXXQ
     Dosage: 300 MILLIGRAM, Q6WK
     Route: 040
     Dates: start: 20220412

REACTIONS (9)
  - Gastrointestinal disorder [Unknown]
  - COVID-19 [Unknown]
  - Pneumonia [Unknown]
  - Pulmonary oedema [Unknown]
  - Angina pectoris [Unknown]
  - Oedema peripheral [Unknown]
  - Renal pain [Recovering/Resolving]
  - Off label use [Unknown]
  - Pain [Unknown]

NARRATIVE: CASE EVENT DATE: 20220101
